FAERS Safety Report 20595298 (Version 2)
Quarter: 2022Q1

REPORT INFORMATION
  Report Type: Spontaneous
  Country: IN (occurrence: IN)
  Receive Date: 20220315
  Receipt Date: 20220322
  Transmission Date: 20220423
  Serious: Yes (Hospitalization)
  Sender: FDA-Public Use
  Company Number: IN-LUPIN LIMITED-2022-03388

PATIENT
  Age: 69 Year
  Sex: Male
  Weight: 38 kg

DRUGS (3)
  1. ALBUTEROL SULFATE [Suspect]
     Active Substance: ALBUTEROL SULFATE
     Indication: Product used for unknown indication
     Dosage: UNK, TID
     Route: 065
     Dates: start: 20211213
  2. FLUTICASONE PROPIONATE\FORMOTEROL FUMARATE [Suspect]
     Active Substance: FLUTICASONE PROPIONATE\FORMOTEROL FUMARATE
     Indication: Product used for unknown indication
     Dosage: UNK UNK, QID
     Route: 065
     Dates: start: 20211213
  3. ANGISPAN TR [Concomitant]
     Indication: Product used for unknown indication
     Dosage: UNK, BID
     Route: 065

REACTIONS (1)
  - Hernia [Recovered/Resolved]
